FAERS Safety Report 7325630-9 (Version None)
Quarter: 2011Q1

REPORT INFORMATION
  Report Type: 
  Country: None (occurrence: None)
  Receive Date: 20110302
  Receipt Date: 20110225
  Transmission Date: 20110831
  Serious: Yes (Other)
  Sender: FDA-Public Use
  Company Number: US-PFIZER INC-2011042022

PATIENT
  Sex: Female
  Weight: 54.422 kg

DRUGS (2)
  1. LEVOXYL [Concomitant]
     Indication: THYROID DISORDER
     Dosage: UNK
  2. LIPITOR [Suspect]
     Indication: BLOOD CHOLESTEROL INCREASED
     Dosage: 10 MG, DAILY
     Route: 048
     Dates: start: 20060101

REACTIONS (2)
  - RHEUMATOID ARTHRITIS [None]
  - BLOOD THYROID STIMULATING HORMONE DECREASED [None]
